FAERS Safety Report 16468676 (Version 3)
Quarter: 2019Q4

REPORT INFORMATION
  Report Type: Spontaneous
  Country: US (occurrence: US)
  Receive Date: 20190624
  Receipt Date: 20191025
  Transmission Date: 20200122
  Serious: Yes (Other)
  Sender: FDA-Public Use
  Company Number: US-PFIZER INC-2019269174

PATIENT
  Age: 64 Year
  Sex: Male

DRUGS (7)
  1. VIAGRA [Suspect]
     Active Substance: SILDENAFIL CITRATE
     Dosage: 100 MG, WEEKLY (ONCE PER WEEK)
     Route: 048
     Dates: start: 20090209, end: 20100222
  2. CIALIS [Suspect]
     Active Substance: TADALAFIL
     Dosage: 20 MG, WEEKLY (ONCE PER WEEK)
     Route: 048
     Dates: start: 20141013, end: 20181007
  3. LOSARTAN. [Concomitant]
     Active Substance: LOSARTAN
     Indication: HYPERTENSION
     Dosage: UNK
  4. VIAGRA [Suspect]
     Active Substance: SILDENAFIL CITRATE
     Indication: ERECTILE DYSFUNCTION
     Dosage: 50 MG, WEEKLY (ONCE PER WEEK)
     Route: 048
     Dates: start: 19980608, end: 20070222
  5. CIALIS [Suspect]
     Active Substance: TADALAFIL
     Indication: ERECTILE DYSFUNCTION
     Dosage: 20 MG, WEEKLY (ONCE PER WEEK)
     Route: 048
     Dates: start: 20090416, end: 20181007
  6. CIALIS [Suspect]
     Active Substance: TADALAFIL
     Dosage: 20 MG, WEEKLY (ONCE PER WEEK)
     Route: 048
     Dates: start: 20101101, end: 20140312
  7. VIAGRA [Suspect]
     Active Substance: SILDENAFIL CITRATE
     Dosage: 100 MG, WEEKLY (ONCE PER WEEK)
     Route: 048
     Dates: start: 20070324, end: 2007

REACTIONS (3)
  - Malignant melanoma stage III [Unknown]
  - Malignant melanoma [Unknown]
  - Post procedural cellulitis [Unknown]

NARRATIVE: CASE EVENT DATE: 2014
